FAERS Safety Report 6503845-7 (Version None)
Quarter: 2009Q4

REPORT INFORMATION
  Report Type: 
  Country: None (occurrence: None)
  Receive Date: 20091217
  Receipt Date: 20091214
  Transmission Date: 20100525
  Serious: Yes (Hospitalization)
  Sender: FDA-Public Use
  Company Number: A0835454A

PATIENT
  Sex: Female

DRUGS (4)
  1. DIGOXIN [Suspect]
     Dates: start: 20060301, end: 20091117
  2. BLINDED TRIAL MEDICATION [Concomitant]
     Indication: THROMBOSIS PROPHYLAXIS
     Route: 048
     Dates: start: 20091001
  3. ENALAPRIL [Concomitant]
     Dates: start: 20060301, end: 20091117
  4. FUROSEMIDE [Concomitant]
     Dates: start: 20060301, end: 20091117

REACTIONS (7)
  - ASTHENIA [None]
  - CARDIOACTIVE DRUG LEVEL INCREASED [None]
  - DIZZINESS [None]
  - NAUSEA [None]
  - RENAL FAILURE ACUTE [None]
  - THERAPEUTIC AGENT TOXICITY [None]
  - VOMITING [None]
